FAERS Safety Report 5312132-4 (Version None)
Quarter: 2007Q2

REPORT INFORMATION
  Report Type: 
  Country: None (occurrence: None)
  Receive Date: 20070430
  Receipt Date: 20060918
  Transmission Date: 20071010
  Serious: No
  Sender: FDA-Public Use
  Company Number: 2006UW18252

PATIENT
  Age: 77 Year
  Sex: Female

DRUGS (5)
  1. NEXIUM [Suspect]
     Route: 048
     Dates: start: 20050101
  2. ZOCOR [Concomitant]
  3. CARDIZEM [Concomitant]
  4. PLAVIX [Concomitant]
  5. VITAMIN CAP [Concomitant]

REACTIONS (1)
  - HYPOGLYCAEMIA [None]
